FAERS Safety Report 14172250 (Version 1)
Quarter: 2017Q4

REPORT INFORMATION
  Report Type: Spontaneous
  Country: JP (occurrence: JP)
  Receive Date: 20171109
  Receipt Date: 20171109
  Transmission Date: 20180321
  Serious: Yes (Death, Other)
  Sender: FDA-Public Use
  Company Number: JP-SUN PHARMACEUTICAL INDUSTRIES LTD-2017R3-153869

PATIENT
  Age: 27 Year
  Sex: Female

DRUGS (1)
  1. APRESOLINE HYDROCHLORIDE [Suspect]
     Active Substance: HYDRALAZINE HYDROCHLORIDE
     Indication: HYPERTENSION
     Route: 030

REACTIONS (4)
  - Eclampsia [Unknown]
  - Anaphylactoid syndrome of pregnancy [Unknown]
  - Exposure during pregnancy [Unknown]
  - Cerebral haemorrhage [Fatal]
